FAERS Safety Report 9602729 (Version 5)
Quarter: 2014Q3

REPORT INFORMATION
  Report Type: Spontaneous
  Country: FR (occurrence: FR)
  Receive Date: 20131007
  Receipt Date: 20140808
  Transmission Date: 20150326
  Serious: Yes (Hospitalization)
  Sender: FDA-Public Use
  Company Number: FR-GE HEALTHCARE MEDICAL DIAGNOSTICS-OMPQ-PR-1309S-1187

PATIENT
  Age: 44 Year
  Sex: Female

DRUGS (6)
  1. OMNIPAQUE [Suspect]
     Active Substance: IOHEXOL
     Indication: NEOPLASM
     Dosage: DOSE NOT REPORTED
     Route: 042
     Dates: start: 20130405, end: 20130405
  2. ROCEPHINE [Suspect]
     Active Substance: CEFTRIAXONE SODIUM
     Dates: start: 20130328, end: 20130404
  3. VANCOMYCINE [Suspect]
     Active Substance: VANCOMYCIN
     Dates: start: 20130404, end: 20130426
  4. OMNIPAQUE [Suspect]
     Active Substance: IOHEXOL
     Indication: DIAGNOSTIC PROCEDURE
  5. FLAGYL [Suspect]
     Active Substance: METRONIDAZOLE\METRONIDAZOLE HYDROCHLORIDE
     Dates: start: 20130328, end: 20130404
  6. RIFAMPICINE [Suspect]
     Active Substance: RIFAMPIN
     Dates: start: 20130412, end: 20130426

REACTIONS (2)
  - Histiocytosis haematophagic [Recovered/Resolved]
  - Drug reaction with eosinophilia and systemic symptoms [Recovered/Resolved]

NARRATIVE: CASE EVENT DATE: 20130422
